FAERS Safety Report 6730408-0 (Version None)
Quarter: 2010Q2

REPORT INFORMATION
  Report Type: 
  Country: None (occurrence: None)
  Receive Date: 20100518
  Receipt Date: 20100513
  Transmission Date: 20101027
  Serious: Yes (Death)
  Sender: FDA-Public Use
  Company Number: A0859593A

PATIENT
  Age: 80 Year
  Sex: Male

DRUGS (3)
  1. PROMACTA [Suspect]
     Indication: IDIOPATHIC THROMBOCYTOPENIC PURPURA
     Dosage: 50MG PER DAY
     Route: 048
     Dates: start: 20090813, end: 20091124
  2. CORTICOSTEROIDS [Concomitant]
     Indication: IDIOPATHIC THROMBOCYTOPENIC PURPURA
     Dates: start: 20090718
  3. IMMUNE GLOBULIN INTRAVENOUS (HUMAN) [Concomitant]
     Indication: IDIOPATHIC THROMBOCYTOPENIC PURPURA
     Dates: start: 20090718

REACTIONS (3)
  - CHOLANGITIS [None]
  - IDIOPATHIC THROMBOCYTOPENIC PURPURA [None]
  - PANCREATITIS [None]
